FAERS Safety Report 16301263 (Version 1)
Quarter: 2019Q2

REPORT INFORMATION
  Report Type: Spontaneous
  Country: IT (occurrence: IT)
  Receive Date: 20190510
  Receipt Date: 20190510
  Transmission Date: 20190711
  Serious: Yes (Other)
  Sender: FDA-Public Use
  Company Number: IT-TOLMAR, INC.-TOLG20192244

PATIENT
  Age: 26 Year
  Sex: Female

DRUGS (1)
  1. CLOBETASOL PROPIONATE. [Suspect]
     Active Substance: CLOBETASOL PROPIONATE
     Indication: PSORIASIS
     Dosage: APPLIED OVER 15-20% OF TOTAL BODY AREA
     Route: 061

REACTIONS (16)
  - Cushing^s syndrome [Unknown]
  - Weight increased [Recovering/Resolving]
  - Skin atrophy [Unknown]
  - Arthralgia [Unknown]
  - Central obesity [Unknown]
  - Incorrect dose administered [None]
  - Bone infarction [Unknown]
  - Osteopenia [Unknown]
  - Cushingoid [Unknown]
  - Product administration error [None]
  - Incorrect product administration duration [None]
  - Product prescribing issue [None]
  - Skin striae [Unknown]
  - Abdominal fat apron [Unknown]
  - Lipohypertrophy [Unknown]
  - Ecchymosis [Unknown]
